FAERS Safety Report 6849123-8 (Version None)
Quarter: 2010Q3

REPORT INFORMATION
  Report Type: 
  Country: None (occurrence: None)
  Receive Date: 20100716
  Receipt Date: 20100705
  Transmission Date: 20110219
  Serious: Yes (Other)
  Sender: FDA-Public Use
  Company Number: PHHY2010TW32903

PATIENT
  Sex: Female

DRUGS (2)
  1. ACLASTA [Suspect]
     Indication: OSTEOPOROSIS POSTMENOPAUSAL
     Dosage: 5 MG
     Dates: start: 20090218, end: 20100225
  2. ACLASTA [Suspect]
     Dosage: 5 MG
     Dates: start: 20100225

REACTIONS (8)
  - APHAGIA [None]
  - DENTAL NECROSIS [None]
  - INFLAMMATION [None]
  - OSTEONECROSIS OF JAW [None]
  - PURULENCE [None]
  - SURGERY [None]
  - TOOTH EXTRACTION [None]
  - TOOTHACHE [None]
